FAERS Safety Report 7652776-8 (Version None)
Quarter: 2011Q3

REPORT INFORMATION
  Report Type: 
  Country: None (occurrence: None)
  Receive Date: 20110803
  Receipt Date: 20080728
  Transmission Date: 20111222
  Serious: Yes (Disabling, Other)
  Sender: FDA-Public Use
  Company Number: US-BAYER-US-2007-023135

PATIENT
  Sex: Female
  Weight: 73.016 kg

DRUGS (16)
  1. NEPHROCAPS [Concomitant]
  2. MAGNEVIST [Suspect]
     Indication: NUCLEAR MAGNETIC RESONANCE IMAGING BRAIN
     Dosage: 15 ML, ONCE
     Dates: start: 20060127, end: 20060127
  3. LASIX [Concomitant]
  4. PHOSLO [Concomitant]
  5. ACETYLSALICYLIC ACID SRT [Concomitant]
  6. OMNISCAN [Suspect]
     Indication: NUCLEAR MAGNETIC RESONANCE IMAGING
     Dosage: 0.1 MMOL/KG, ONCE
     Dates: start: 20051010, end: 20051010
  7. METOPROLOL TARTRATE [Concomitant]
  8. CYCLOBENZAPRINE [Concomitant]
  9. EPOGEN [Concomitant]
  10. VALIUM [Concomitant]
  11. MAGNEVIST [Suspect]
     Indication: ANGIOGRAM
     Dosage: 40 ML, ONCE
     Dates: start: 20051111, end: 20051111
  12. PLAVIX [Concomitant]
  13. NORVASC [Concomitant]
  14. MAGNEVIST [Suspect]
  15. DIOVAN [Concomitant]
  16. LEVOTHYROXINE SODIUM [Concomitant]

REACTIONS (11)
  - PAIN [None]
  - ABASIA [None]
  - ACTIVITIES OF DAILY LIVING IMPAIRED [None]
  - ANHEDONIA [None]
  - SKIN HYPERPIGMENTATION [None]
  - ANXIETY [None]
  - NEPHROGENIC SYSTEMIC FIBROSIS [None]
  - EXTREMITY CONTRACTURE [None]
  - JOINT RANGE OF MOTION DECREASED [None]
  - WHEELCHAIR USER [None]
  - SKIN INDURATION [None]
